FAERS Safety Report 7460437-3 (Version None)
Quarter: 2011Q2

REPORT INFORMATION
  Report Type: 
  Country: None (occurrence: None)
  Receive Date: 20110505
  Receipt Date: 20110428
  Transmission Date: 20111010
  Serious: Yes (Death)
  Sender: FDA-Public Use
  Company Number: B0716478A

PATIENT
  Sex: Male
  Weight: 28.6 kg

DRUGS (17)
  1. ALKERAN [Suspect]
     Indication: STEM CELL TRANSPLANT
     Route: 042
     Dates: start: 20090326, end: 20090326
  2. ZOVIRAX [Concomitant]
     Dosage: 240MG PER DAY
     Route: 042
     Dates: start: 20090409, end: 20090429
  3. MINOCYCLINE HCL [Concomitant]
     Dosage: 140MG PER DAY
     Route: 042
     Dates: start: 20090327, end: 20090420
  4. DENOSINE (GANCYCLOVIR) [Concomitant]
     Dosage: 300MG PER DAY
     Route: 042
     Dates: start: 20090401, end: 20090408
  5. NEUTROGIN [Concomitant]
     Dates: start: 20090414, end: 20090427
  6. FUNGUARD [Concomitant]
     Dosage: 50MG PER DAY
     Route: 042
     Dates: start: 20090326, end: 20090424
  7. ENDOXAN [Suspect]
     Indication: STEM CELL TRANSPLANT
     Route: 042
     Dates: start: 20090407, end: 20090407
  8. DENOSINE (GANCYCLOVIR) [Concomitant]
     Dosage: 240MG PER DAY
     Route: 042
     Dates: start: 20090513, end: 20090605
  9. VANCOMYCIN HYDROCHLORIDE [Concomitant]
     Dosage: 1350MG PER DAY
     Route: 042
     Dates: start: 20090421, end: 20090424
  10. THYMOGLOBULIN [Suspect]
     Indication: STEM CELL TRANSPLANT
     Route: 042
     Dates: start: 20090406, end: 20090407
  11. PROGRAF [Suspect]
     Dosage: .5MG PER DAY
     Route: 065
     Dates: start: 20090408, end: 20090710
  12. ZOSYN [Concomitant]
     Dosage: 13.5G PER DAY
     Route: 042
     Dates: start: 20090327, end: 20090420
  13. ETOPOSIDE [Suspect]
     Indication: STEM CELL TRANSPLANT
     Route: 042
     Dates: start: 20090406, end: 20090407
  14. PERDIPINE [Concomitant]
     Dosage: 10MG PER DAY
     Route: 042
     Dates: start: 20090409, end: 20090501
  15. FLUDARA [Suspect]
     Indication: STEM CELL TRANSPLANT
     Route: 042
     Dates: start: 20090402, end: 20090407
  16. GASTER [Concomitant]
     Dosage: 10MG PER DAY
     Route: 042
     Dates: start: 20090406, end: 20090424
  17. OMEPRAL [Concomitant]
     Dosage: 20MG PER DAY
     Route: 042
     Dates: start: 20090422, end: 20090428

REACTIONS (1)
  - PNEUMONIA CYTOMEGALOVIRAL [None]
